FAERS Safety Report 9620125 (Version 1)
Quarter: 2013Q4

REPORT INFORMATION
  Report Type: Spontaneous
  Country: RO (occurrence: RO)
  Receive Date: 20131014
  Receipt Date: 20131014
  Transmission Date: 20140711
  Serious: Yes (Hospitalization)
  Sender: FDA-Public Use
  Company Number: PHHY2013RO111393

PATIENT
  Age: 81 Year
  Sex: Female

DRUGS (4)
  1. DILTIAZEM [Suspect]
     Dosage: 96 DF, UNK
  2. INDAPAMIDE [Suspect]
     Dosage: 16 DF, UNK
  3. CALCIUM GLUCONATE [Concomitant]
  4. EPINEPHRINE [Concomitant]

REACTIONS (8)
  - Myocardial depression [Recovered/Resolved]
  - Suicide attempt [Recovered/Resolved]
  - Loss of consciousness [Recovered/Resolved]
  - Metabolic acidosis [Recovered/Resolved]
  - Lung infiltration [Recovered/Resolved]
  - Sinus bradycardia [Recovered/Resolved]
  - Atrioventricular block [Recovered/Resolved]
  - Intentional overdose [Unknown]
